FAERS Safety Report 14846630 (Version 1)
Quarter: 2018Q2

REPORT INFORMATION
  Report Type: Spontaneous
  Country: CN (occurrence: CN)
  Receive Date: 20180504
  Receipt Date: 20180504
  Transmission Date: 20180711
  Serious: Yes (Other)
  Sender: FDA-Public Use
  Company Number: CN-ASTRAZENECA-2018SE59541

PATIENT
  Sex: Female
  Weight: 9 kg

DRUGS (2)
  1. BUDESONIDE. [Suspect]
     Active Substance: BUDESONIDE
     Indication: DRUG THERAPY
     Route: 055
     Dates: start: 20180319, end: 20180327
  2. SODIUM CHLORIDE. [Concomitant]
     Active Substance: SODIUM CHLORIDE
     Indication: MEDICATION DILUTION
     Route: 055
     Dates: start: 20180319, end: 20180327

REACTIONS (1)
  - Drug eruption [Recovered/Resolved]
